FAERS Safety Report 24076245 (Version 1)
Quarter: 2024Q3

REPORT INFORMATION
  Report Type: Report from Study
  Country: CA (occurrence: CA)
  Receive Date: 20240711
  Receipt Date: 20240711
  Transmission Date: 20241016
  Serious: Yes (Other)
  Sender: JOHNSON AND JOHNSON
  Company Number: CA-JNJFOC-20231280619

PATIENT
  Age: 70 Year
  Sex: Female
  Weight: 98 kg

DRUGS (5)
  1. REMICADE [Suspect]
     Active Substance: INFLIXIMAB
     Indication: Crohn^s disease
     Route: 041
     Dates: start: 20240203
  2. REMICADE [Suspect]
     Active Substance: INFLIXIMAB
     Route: 041
     Dates: start: 20210719
  3. REMICADE [Suspect]
     Active Substance: INFLIXIMAB
     Route: 041
     Dates: start: 20210719
  4. REMICADE [Suspect]
     Active Substance: INFLIXIMAB
     Dosage: DOSE WAS REPORTED AS 983 ( UNIT UNSPECIFIED)
     Route: 041
     Dates: start: 20210719
  5. REMICADE [Suspect]
     Active Substance: INFLIXIMAB
     Route: 041

REACTIONS (7)
  - Biopsy liver [Unknown]
  - Rash pruritic [Recovering/Resolving]
  - Eye infection [Not Recovered/Not Resolved]
  - Abdominal pain [Recovering/Resolving]
  - Influenza [Not Recovered/Not Resolved]
  - Blood glucose fluctuation [Recovering/Resolving]
  - Dermatitis allergic [Unknown]

NARRATIVE: CASE EVENT DATE: 20231228
